FAERS Safety Report 10076280 (Version 2)
Quarter: 2014Q3

REPORT INFORMATION
  Report Type: Spontaneous
  Country: US (occurrence: US)
  Receive Date: 20140414
  Receipt Date: 20140711
  Transmission Date: 20150326
  Serious: No
  Sender: FDA-Public Use
  Company Number: US-009507513-1403USA010881

PATIENT
  Age: 21 Year
  Sex: Female
  Weight: 60.77 kg

DRUGS (1)
  1. NEXPLANON [Suspect]
     Active Substance: ETONOGESTREL
     Dosage: UNK
     Route: 059
     Dates: start: 20140321

REACTIONS (3)
  - Device deployment issue [Recovered/Resolved]
  - Implant site swelling [Recovered/Resolved]
  - Medical device complication [Recovered/Resolved]

NARRATIVE: CASE EVENT DATE: 20140321
